FAERS Safety Report 12104369 (Version 6)
Quarter: 2016Q2

REPORT INFORMATION
  Report Type: Spontaneous
  Country: US (occurrence: US)
  Receive Date: 20160223
  Receipt Date: 20160614
  Transmission Date: 20160815
  Serious: Yes (Hospitalization, Disabling, Other)
  Sender: FDA-Public Use
  Company Number: US-009507513-1602USA010150

PATIENT
  Sex: Female
  Weight: 74.83 kg

DRUGS (3)
  1. ALENDRONATE SODIUM. [Suspect]
     Active Substance: ALENDRONATE SODIUM
     Indication: BONE LOSS
     Dosage: 70 MG, QW
     Route: 048
     Dates: start: 201106, end: 20140613
  2. FOSAMAX [Suspect]
     Active Substance: ALENDRONATE SODIUM
     Indication: BONE LOSS
     Dosage: 70 MG, QW
     Route: 048
     Dates: start: 20060310, end: 200608
  3. BONIVA [Suspect]
     Active Substance: IBANDRONATE SODIUM
     Indication: BONE LOSS
     Dosage: 150 MG, QW
     Dates: start: 200609, end: 201106

REACTIONS (13)
  - Bone disorder [Recovering/Resolving]
  - Hepatic cyst [Unknown]
  - Stress fracture [Unknown]
  - Vitamin D deficiency [Unknown]
  - Osteoporosis [Not Recovered/Not Resolved]
  - Femur fracture [Recovering/Resolving]
  - Bone formation increased [Unknown]
  - Type 2 diabetes mellitus [Unknown]
  - Multiple fractures [Not Recovered/Not Resolved]
  - Femur fracture [Not Recovered/Not Resolved]
  - Ankle fracture [Unknown]
  - Low turnover osteopathy [Not Recovered/Not Resolved]
  - Hypertension [Unknown]

NARRATIVE: CASE EVENT DATE: 2006
